FAERS Safety Report 6337153-4 (Version None)
Quarter: 2009Q3

REPORT INFORMATION
  Report Type: 
  Country: None (occurrence: None)
  Receive Date: 20090831
  Receipt Date: 20090827
  Transmission Date: 20100115
  Serious: Yes (Death, Hospitalization)
  Sender: FDA-Public Use
  Company Number: 2009SP010413

PATIENT
  Age: 60 Year
  Sex: Male
  Weight: 81 kg

DRUGS (2)
  1. PEGINTERFERON ALFA-2B (S-P) (PEGINTERFERON ALFA-2B) (80 MCG) [Suspect]
     Indication: HEPATITIS C
     Dosage: 1.5 MCG; QW; SC
     Route: 058
     Dates: start: 20070212
  2. RIBAVIRIN [Suspect]
     Indication: HEPATITIS C
     Dosage: 250 MG; QD; PO
     Route: 048
     Dates: start: 20070212

REACTIONS (2)
  - GASTROINTESTINAL HAEMORRHAGE [None]
  - OESOPHAGEAL HAEMORRHAGE [None]
